FAERS Safety Report 25074849 (Version 1)
Quarter: 2025Q1

REPORT INFORMATION
  Report Type: Spontaneous
  Country: US (occurrence: US)
  Receive Date: 20250313
  Receipt Date: 20250313
  Transmission Date: 20250409
  Serious: Yes (Hospitalization, Other)
  Sender: ACCORD
  Company Number: US-Accord-473484

PATIENT
  Age: 30 Year
  Sex: Female

DRUGS (1)
  1. METHOTREXATE [Suspect]
     Active Substance: METHOTREXATE
     Indication: Rheumatoid arthritis

REACTIONS (5)
  - Pyelonephritis fungal [Recovered/Resolved]
  - Leukopenia [Unknown]
  - Vulvovaginal mycotic infection [Recovered/Resolved]
  - Urinary tract infection fungal [Recovered/Resolved]
  - Klebsiella infection [Recovered/Resolved]
